FAERS Safety Report 9973992 (Version 1)
Quarter: 2014Q1

REPORT INFORMATION
  Report Type: Report from Study
  Country: US (occurrence: US)
  Receive Date: 20140306
  Receipt Date: 20140306
  Transmission Date: 20141002
  Serious: No
  Sender: FDA-Public Use
  Company Number: US-ABBVIE-13P-163-1159512-00

PATIENT
  Age: 53 Year
  Sex: Female

DRUGS (4)
  1. HUMIRA [Suspect]
     Indication: RHEUMATOID ARTHRITIS
     Dates: start: 20131015, end: 20131015
  2. HUMIRA [Suspect]
  3. AZOR [Concomitant]
     Indication: HYPERTENSION
  4. BIRTH CONTROL PILLS [Concomitant]
     Indication: HORMONE THERAPY

REACTIONS (1)
  - Injection site discolouration [Not Recovered/Not Resolved]
